FAERS Safety Report 12500543 (Version 1)
Quarter: 2016Q2

REPORT INFORMATION
  Report Type: Not Available
  Country: None (occurrence: US)
  Receive Date: 20160627
  Receipt Date: 20160627
  Transmission Date: 20160815
  Serious: No
  Sender: FDA-Public Use
  Company Number: US-AKORN-33067

PATIENT

DRUGS (1)
  1. TROPICAMIDE OPHTHALMIC SOLUTION, USP [Suspect]
     Active Substance: TROPICAMIDE

REACTIONS (4)
  - Keratitis [None]
  - Drug effect prolonged [Recovered/Resolved]
  - Eye swelling [Recovered/Resolved]
  - Ocular hyperaemia [Recovered/Resolved]
